FAERS Safety Report 5278767-2 (Version None)
Quarter: 2007Q1

REPORT INFORMATION
  Report Type: 
  Country: None (occurrence: None)
  Receive Date: 20061213
  Receipt Date: 20060104
  Transmission Date: 20070707
  Serious: No
  Sender: FDA-Public Use
  Company Number: 2006UW00135

PATIENT
  Age: 52 Year
  Sex: Male
  Weight: 86.182 kg

DRUGS (2)
  1. SEROQUEL [Suspect]
     Indication: SOMNOLENCE
  2. LOTREL [Concomitant]

REACTIONS (1)
  - BLOOD TRIGLYCERIDES INCREASED [None]
